FAERS Safety Report 7083798-6 (Version None)
Quarter: 2010Q4

REPORT INFORMATION
  Report Type: 
  Country: None (occurrence: None)
  Receive Date: 20101025
  Receipt Date: 20101013
  Transmission Date: 20110411
  Serious: Yes (Hospitalization)
  Sender: FDA-Public Use
  Company Number: 107243

PATIENT
  Age: 6 Month
  Sex: Female

DRUGS (1)
  1. PROPRANOLOL HCL [Suspect]
     Indication: HAEMANGIOMA
     Dosage: 2MG/KG/DAY

REACTIONS (7)
  - ALLODYNIA [None]
  - BLOOD PRESSURE DECREASED [None]
  - HYPOGLYCAEMIC SEIZURE [None]
  - HYPOPHAGIA [None]
  - LETHARGY [None]
  - SOMNOLENCE [None]
  - VOMITING [None]
